FAERS Safety Report 8244842-3 (Version None)
Quarter: 2012Q1

REPORT INFORMATION
  Report Type: 
  Country: None (occurrence: None)
  Receive Date: 20120329
  Receipt Date: 20110721
  Transmission Date: 20120608
  Serious: No
  Sender: FDA-Public Use
  Company Number: US-MYLANLABS-2011S1011907

PATIENT
  Sex: Female

DRUGS (10)
  1. FENTANYL-100 [Suspect]
     Dosage: Q72HR
     Route: 062
     Dates: start: 20110411, end: 20110610
  2. FENTANYL-100 [Suspect]
     Dosage: Q72HR
     Route: 062
     Dates: start: 20110411, end: 20110610
  3. FENTANYL-100 [Suspect]
     Indication: PAIN
     Dosage: Q72HR
     Route: 062
     Dates: start: 20110411, end: 20110610
  4. FENTANYL-100 [Suspect]
     Indication: OSTEOPOROSIS
     Dosage: Q72HR
     Route: 062
     Dates: start: 20110411, end: 20110610
  5. FENTANYL-100 [Suspect]
     Indication: OSTEOARTHRITIS
     Dosage: Q72HR
     Route: 062
     Dates: start: 20110411, end: 20110610
  6. FENTANYL-100 [Suspect]
     Dosage: Q72HR
     Route: 062
     Dates: start: 20110411, end: 20110610
  7. FENTANYL-100 [Suspect]
     Dosage: Q72HR
     Route: 062
     Dates: start: 20110411, end: 20110610
  8. FENTANYL-100 [Suspect]
     Indication: RHEUMATOID ARTHRITIS
     Dosage: Q72HR
     Route: 062
     Dates: start: 20110411, end: 20110610
  9. FENTANYL-100 [Suspect]
     Dosage: Q72HR
     Route: 062
     Dates: start: 20110411, end: 20110610
  10. FENTANYL-100 [Suspect]
     Indication: FIBROMYALGIA
     Dosage: Q72HR
     Route: 062
     Dates: start: 20110411, end: 20110610

REACTIONS (1)
  - APPLICATION SITE PAIN [None]
